FAERS Safety Report 7743830-0 (Version None)
Quarter: 2011Q3

REPORT INFORMATION
  Report Type: 
  Country: None (occurrence: None)
  Receive Date: 20110912
  Receipt Date: 20101119
  Transmission Date: 20111222
  Serious: Yes (Other)
  Sender: FDA-Public Use
  Company Number: US-GLAXOSMITHKLINE-A0897020A

PATIENT
  Age: 47 Year
  Sex: Female

DRUGS (1)
  1. AVANDAMET [Suspect]
     Indication: TYPE 2 DIABETES MELLITUS
     Route: 048
     Dates: start: 20060706, end: 20101028

REACTIONS (6)
  - DYSPNOEA [None]
  - HYPERTENSION [None]
  - CARDIOVASCULAR DISORDER [None]
  - MYOCARDIAL ISCHAEMIA [None]
  - CHEST PAIN [None]
  - FLUID RETENTION [None]
